FAERS Safety Report 25251740 (Version 2)
Quarter: 2025Q2

REPORT INFORMATION
  Report Type: Spontaneous
  Country: GR (occurrence: GR)
  Receive Date: 20250429
  Receipt Date: 20250521
  Transmission Date: 20250717
  Serious: Yes (Other)
  Sender: PFIZER
  Company Number: GR-UCBSA-2025021965

PATIENT
  Age: 8 Year
  Sex: Male

DRUGS (10)
  1. LEVETIRACETAM [Suspect]
     Active Substance: LEVETIRACETAM
     Indication: Lennox-Gastaut syndrome
  2. LEVETIRACETAM [Suspect]
     Active Substance: LEVETIRACETAM
     Dosage: 0.4/KG, DAILY
  3. CANNABIDIOL [Suspect]
     Active Substance: CANNABIDIOL
     Dates: start: 202311
  4. VALPROIC ACID [Concomitant]
     Active Substance: VALPROIC ACID
  5. CLOZAPINE [Concomitant]
     Active Substance: CLOZAPINE
  6. LAMOTRIGINE [Concomitant]
     Active Substance: LAMOTRIGINE
  7. CLONAZEPAM [Concomitant]
     Active Substance: CLONAZEPAM
  8. RUFINAMIDE [Concomitant]
     Active Substance: RUFINAMIDE
  9. TOPIRAMATE [Concomitant]
     Active Substance: TOPIRAMATE
  10. ETHOSUXIMIDE [Concomitant]
     Active Substance: ETHOSUXIMIDE

REACTIONS (9)
  - Seizure [Recovered/Resolved]
  - Fall [Unknown]
  - Injury [Unknown]
  - Dissociative disorder [Unknown]
  - Fatigue [Unknown]
  - Decreased appetite [Unknown]
  - Irritability [Unknown]
  - Off label use [Unknown]
  - Drug ineffective for unapproved indication [Unknown]
